FAERS Safety Report 5208523-2 (Version None)
Quarter: 2007Q1

REPORT INFORMATION
  Report Type: 
  Country: None (occurrence: None)
  Receive Date: 20070115
  Receipt Date: 20070110
  Transmission Date: 20070707
  Serious: Yes (Other)
  Sender: FDA-Public Use
  Company Number: CH-ROXANE LABORATORIES, INC-2007-BP-00442RO

PATIENT
  Age: 57 Year
  Sex: Male

DRUGS (4)
  1. LEUCOVORIN CALCIUM [Suspect]
     Indication: CHEMOTHERAPY
     Dosage: 20 MG/M2 ONCE/WEEK FOR 4 WEEKS EVERY 6 WEEKS
     Route: 042
  2. BEVACIZUMAB [Suspect]
     Indication: CHEMOTHERAPY
     Dosage: 5 MG/KG EVERY 2 WEEKS
  3. IRINOTECAN HCL [Suspect]
     Indication: CHEMOTHERAPY
     Dosage: 125 MG/M2 ONCE/WEEK FOR 4 WEEKS EVERY 6 WEEKS
     Route: 042
  4. FLUOROURACIL [Suspect]
     Indication: CHEMOTHERAPY
     Dosage: 500 MG/M2 ONCE/WEEK FOR 4 WEEKS EVERY 6 WEEKS
     Route: 042

REACTIONS (4)
  - AORTIC THROMBOSIS [None]
  - EMBOLISM [None]
  - ISCHAEMIA [None]
  - NECROSIS ISCHAEMIC [None]
